FAERS Safety Report 8533919-0 (Version None)
Quarter: 2012Q3

REPORT INFORMATION
  Report Type: 
  Country: None (occurrence: None)
  Receive Date: 20120724
  Receipt Date: 20120716
  Transmission Date: 20120928
  Serious: Yes (Hospitalization)
  Sender: FDA-Public Use
  Company Number: US-ASTRAZENECA-2012SE49325

PATIENT
  Age: 25 Year
  Sex: Female
  Weight: 87.1 kg

DRUGS (5)
  1. SYMBICORT [Suspect]
     Indication: ASTHMA
     Dosage: 160/4.5 MCG TWO PUFFS TWO TIMES A DAY
     Route: 055
  2. RESCUE INHALER [Concomitant]
  3. SYMBICORT [Suspect]
     Dosage: 160/4.5 MCG TWO PUFFS TWO TIMES A DAY
     Route: 055
  4. XOPENEX [Concomitant]
  5. PREDNISONE [Concomitant]

REACTIONS (4)
  - PNEUMONIA [None]
  - WEIGHT DECREASED [None]
  - OFF LABEL USE [None]
  - DRUG DOSE OMISSION [None]
